FAERS Safety Report 15491326 (Version 6)
Quarter: 2019Q2

REPORT INFORMATION
  Report Type: Spontaneous
  Country: CA (occurrence: CA)
  Receive Date: 20181012
  Receipt Date: 20190420
  Transmission Date: 20190711
  Serious: Yes (Other)
  Sender: FDA-Public Use
  Company Number: CA-CELLTRION INC.-2017CA004408

PATIENT

DRUGS (9)
  1. INFLECTRA [Suspect]
     Active Substance: INFLIXIMAB-DYYB
     Dosage: 600 MG, EVERY 6 WEEKS
     Route: 042
     Dates: start: 20190125
  2. CELEBREX [Concomitant]
     Active Substance: CELECOXIB
     Dosage: 200 MG, DAILY AS NEEDED
     Route: 065
  3. HUMIRA [Concomitant]
     Active Substance: ADALIMUMAB
     Dosage: 40 MG, TWICE MONTHLY
     Route: 065
     Dates: end: 20170204
  4. INFLECTRA [Suspect]
     Active Substance: INFLIXIMAB-DYYB
     Dosage: 600 MG, EVERY 6 WEEKS
     Route: 042
     Dates: start: 20171012
  5. INFLECTRA [Suspect]
     Active Substance: INFLIXIMAB-DYYB
     Indication: ARTHRITIS
     Dosage: UNK
     Route: 042
     Dates: start: 20170815
  6. INFLECTRA [Suspect]
     Active Substance: INFLIXIMAB-DYYB
     Indication: ANKYLOSING SPONDYLITIS
     Dosage: 600 MG, (EVERY 0, 2, 6 WEEKS, THEN EVERY 8 WEEKS FOR 12 MONTHS)
     Route: 042
     Dates: start: 20170320
  7. CANDESARTAN. [Concomitant]
     Active Substance: CANDESARTAN
     Dosage: 12.5 MG, DAILY
     Dates: start: 2004
  8. INFLECTRA [Suspect]
     Active Substance: INFLIXIMAB-DYYB
     Dosage: 600 MG, EVERY 6 WEEKS
     Route: 042
     Dates: start: 20190321
  9. LIPITOR [Concomitant]
     Active Substance: ATORVASTATIN CALCIUM
     Dosage: 10 MG, DAILY
     Dates: start: 2003

REACTIONS (13)
  - Spinal pain [Recovering/Resolving]
  - Back pain [Not Recovered/Not Resolved]
  - Blood iron decreased [Unknown]
  - Fall [Unknown]
  - Nausea [Recovered/Resolved]
  - Iritis [Recovered/Resolved]
  - Therapeutic response shortened [Not Recovered/Not Resolved]
  - Nervousness [Unknown]
  - Ankle fracture [Recovering/Resolving]
  - Psoriasis [Recovered/Resolved]
  - Flushing [Not Recovered/Not Resolved]
  - Weight decreased [Unknown]
  - Inappropriate schedule of product administration [Unknown]

NARRATIVE: CASE EVENT DATE: 2017
